FAERS Safety Report 8293878-5 (Version None)
Quarter: 2012Q2

REPORT INFORMATION
  Report Type: 
  Country: None (occurrence: None)
  Receive Date: 20120418
  Receipt Date: 20120416
  Transmission Date: 20120825
  Serious: No
  Sender: FDA-Public Use
  Company Number: US-PFIZER INC-2012095114

PATIENT
  Sex: Female

DRUGS (3)
  1. CELEBREX [Suspect]
  2. RELPAX [Suspect]
  3. SPIRIVA [Suspect]

REACTIONS (3)
  - DYSPNOEA [None]
  - HYPERTENSION [None]
  - MENOPAUSE [None]
